FAERS Safety Report 9430073 (Version 2)
Quarter: 2013Q3

REPORT INFORMATION
  Report Type: Spontaneous
  Country: DE (occurrence: DE)
  Receive Date: 20130730
  Receipt Date: 20130905
  Transmission Date: 20140515
  Serious: Yes (Hospitalization, Other)
  Sender: FDA-Public Use
  Company Number: DE-JNJFOC-20130715452

PATIENT
  Sex: Female

DRUGS (6)
  1. XARELTO [Suspect]
     Indication: ATRIAL FIBRILLATION
     Route: 048
  2. XARELTO [Suspect]
     Indication: CEREBROVASCULAR ACCIDENT PROPHYLAXIS
     Route: 048
  3. VALSARTAN [Concomitant]
     Route: 065
  4. VERAPAMIL [Concomitant]
     Route: 065
  5. THYRONAJOD [Concomitant]
     Route: 065
  6. PANTOZOL [Concomitant]
     Route: 065

REACTIONS (1)
  - Transient ischaemic attack [Recovered/Resolved]
